FAERS Safety Report 19456538 (Version 2)
Quarter: 2022Q1

REPORT INFORMATION
  Report Type: Spontaneous
  Country: JP (occurrence: JP)
  Receive Date: 20210624
  Receipt Date: 20220323
  Transmission Date: 20220423
  Serious: Yes (Hospitalization, Other)
  Sender: FDA-Public Use
  Company Number: JP-SANOFI-2020SA177062

PATIENT
  Age: 17 Month
  Sex: Female

DRUGS (18)
  1. SABRIL [Suspect]
     Active Substance: VIGABATRIN
     Indication: Infantile spasms
     Dosage: 450 MG, BID
     Route: 048
     Dates: start: 20200908, end: 20210221
  2. SABRIL [Suspect]
     Active Substance: VIGABATRIN
     Dosage: 100 MG, BID
     Route: 048
     Dates: start: 20200403, end: 20200407
  3. SABRIL [Suspect]
     Active Substance: VIGABATRIN
     Dosage: 200 MG, BID
     Route: 048
     Dates: start: 20200408, end: 20200420
  4. SABRIL [Suspect]
     Active Substance: VIGABATRIN
     Dosage: 250 MG, BID
     Route: 048
     Dates: start: 20200421, end: 20200513
  5. SABRIL [Suspect]
     Active Substance: VIGABATRIN
     Dosage: 300 MG, BID
     Route: 048
     Dates: start: 20200514, end: 20200709
  6. SABRIL [Suspect]
     Active Substance: VIGABATRIN
     Dosage: 400 MG, BID
     Route: 048
     Dates: start: 20200710, end: 20200907
  7. SABRIL [Suspect]
     Active Substance: VIGABATRIN
     Dosage: 300 MG, BID
     Route: 048
     Dates: start: 20210222, end: 20210302
  8. SABRIL [Suspect]
     Active Substance: VIGABATRIN
     Dosage: 150 MG, BID
     Route: 048
     Dates: start: 20210303, end: 20210421
  9. LEVETIRACETAM [Concomitant]
     Active Substance: LEVETIRACETAM
     Indication: Infantile spasms
     Dosage: DAILY DOSE: 120 MG
     Route: 048
     Dates: end: 20200326
  10. LEVETIRACETAM [Concomitant]
     Active Substance: LEVETIRACETAM
     Dosage: DAILY DOSE: 150 - 600 MG
     Route: 048
     Dates: start: 20200710
  11. LEVETIRACETAM [Concomitant]
     Active Substance: LEVETIRACETAM
     Dosage: DAILY DOSE: 600 MG
     Route: 048
     Dates: start: 20200908
  12. LACOSAMIDE [Concomitant]
     Active Substance: LACOSAMIDE
     Indication: Infantile spasms
     Dosage: DAILY DOSE: 20 - 100 MG
     Route: 048
     Dates: start: 20201017
  13. LACOSAMIDE [Concomitant]
     Active Substance: LACOSAMIDE
     Dosage: DAILY DOSE: 100 MG
     Route: 048
     Dates: start: 20210219
  14. LAMOTRIGINE [Concomitant]
     Active Substance: LAMOTRIGINE
     Indication: Infantile spasms
     Dosage: 2-6 MG/DAY
     Route: 048
     Dates: start: 20210303
  15. LAMOTRIGINE [Concomitant]
     Active Substance: LAMOTRIGINE
     Dosage: 6 MG/DAY
     Route: 048
     Dates: start: 20210402, end: 20210408
  16. LAMOTRIGINE [Concomitant]
     Active Substance: LAMOTRIGINE
     Dosage: 8 MG/DAY
     Route: 048
     Dates: start: 20210409, end: 20210415
  17. LAMOTRIGINE [Concomitant]
     Active Substance: LAMOTRIGINE
     Dosage: 10 MG/DAY
     Route: 048
     Dates: start: 20210416
  18. LEVOMEPROMAZINE [Concomitant]
     Active Substance: LEVOMEPROMAZINE
     Indication: Product used for unknown indication
     Dosage: 2.5 MG/DAY
     Route: 048
     Dates: start: 20210329

REACTIONS (2)
  - Seizure [Unknown]
  - Increased bronchial secretion [Recovered/Resolved]

NARRATIVE: CASE EVENT DATE: 20210222
